FAERS Safety Report 5219174-8 (Version None)
Quarter: 2007Q1

REPORT INFORMATION
  Report Type: 
  Country: None (occurrence: None)
  Receive Date: 20070125
  Receipt Date: 20070124
  Transmission Date: 20070707
  Serious: Yes (Hospitalization)
  Sender: FDA-Public Use
  Company Number: DE-GLAXOSMITHKLINE-D0051919A

PATIENT
  Age: 53 Year
  Sex: Female
  Weight: 95 kg

DRUGS (2)
  1. SEROXAT [Suspect]
     Route: 048
     Dates: start: 20070102, end: 20070102
  2. ALCOHOL [Suspect]
     Route: 048
     Dates: start: 20070102, end: 20070102

REACTIONS (3)
  - INTENTIONAL OVERDOSE [None]
  - NO ADVERSE DRUG EFFECT [None]
  - SUICIDE ATTEMPT [None]
